FAERS Safety Report 12621549 (Version 1)
Quarter: 2016Q3

REPORT INFORMATION
  Report Type: Spontaneous
  Country: US (occurrence: None)
  Receive Date: 20160803
  Receipt Date: 20160803
  Transmission Date: 20161109
  Serious: Yes (Hospitalization)
  Sender: FDA-Public Use
  Company Number: None

PATIENT
  Age: 72 Year
  Sex: Male
  Weight: 116.4 kg

DRUGS (3)
  1. LISINOPRIL. [Suspect]
     Active Substance: LISINOPRIL
     Indication: HYPERTENSION
     Route: 048
     Dates: start: 20110930, end: 20150706
  2. MITOMYCIN. [Concomitant]
     Active Substance: MITOMYCIN
     Indication: SURGERY
     Dosage: OTHER
     Dates: start: 20150706, end: 20150707
  3. MITOMYCIN. [Concomitant]
     Active Substance: MITOMYCIN
     Indication: BLADDER CANCER
     Dosage: OTHER
     Dates: start: 20150706, end: 20150707

REACTIONS (1)
  - Angioedema [None]

NARRATIVE: CASE EVENT DATE: 20150706
